FAERS Safety Report 18889919 (Version 1)
Quarter: 2021Q1

REPORT INFORMATION
  Report Type: Spontaneous
  Country: DE (occurrence: DE)
  Receive Date: 20210213
  Receipt Date: 20210213
  Transmission Date: 20210420
  Serious: Yes (Life-Threatening, Hospitalization, Other)
  Sender: FDA-Public Use
  Company Number: DE-TEVA-2021-DE-1878520

PATIENT
  Age: 18 Month
  Sex: Female
  Weight: 8 kg

DRUGS (4)
  1. VIGANTOLETTEN [Concomitant]
     Active Substance: CHOLECALCIFEROL
     Indication: HYPOTHYROIDISM
     Dosage: 500 IU (INTERNATIONAL UNIT) DAILY; DAILY DOSE: 500 IU INTERNATIONAL UNIT(S) EVERY DAYS
  2. IBUPROFEN. [Suspect]
     Active Substance: IBUPROFEN
     Indication: PYREXIA
     Route: 065
  3. URSOFALK [Concomitant]
     Active Substance: URSODIOL
     Indication: TRISOMY 21
     Dosage: 120 MILLIGRAM DAILY; DAILY DOSE: 120 MG MILLGRAM(S) EVERY DAYS 2 SEPARATED DOSES
  4. L?THYROXIN [Concomitant]
     Active Substance: LEVOTHYROXINE SODIUM
     Indication: HYPOTHYROIDISM
     Dosage: 50 MICROGRAM DAILY; DAILY DOSE: 50 UG MICROGRAM(S) EVERY DAYS

REACTIONS (3)
  - Haematochezia [Recovering/Resolving]
  - Melaena [Recovering/Resolving]
  - Gastrointestinal haemorrhage [Recovering/Resolving]

NARRATIVE: CASE EVENT DATE: 20190529
